FAERS Safety Report 8977767 (Version 1)
Quarter: 2012Q4

REPORT INFORMATION
  Report Type: 
  Country: US (occurrence: US)
  Receive Date: 20121219
  Receipt Date: 20121219
  Transmission Date: 20130627
  Serious: No
  Sender: FDA-Public Use
  Company Number: US-UPSHER-SMITH LABORATORIES, INC.-M1105041

PATIENT
  Age: 26 Year
  Sex: Female

DRUGS (2)
  1. MIDODRINE [Suspect]
     Indication: AUTONOMIC NERVOUS SYSTEM IMBALANCE
     Route: 048
     Dates: start: 20111214
  2. UNSPECIFIED [Concomitant]

REACTIONS (1)
  - Back pain [Not Recovered/Not Resolved]
